FAERS Safety Report 7319213-4 (Version None)
Quarter: 2011Q1

REPORT INFORMATION
  Report Type: 
  Country: None (occurrence: None)
  Receive Date: 20110223
  Receipt Date: 20110223
  Transmission Date: 20110831
  Serious: No
  Sender: FDA-Public Use
  Company Number: None

PATIENT
  Age: 26 Year
  Sex: Female

DRUGS (2)
  1. KEPPRA [Suspect]
     Dosage: 1000 MG TABLET 1-1/2 TABLETS TWO TIMES A DAY
  2. LAMICTAL [Suspect]
     Dosage: 200 MG 1-1/2 TABLETS TWICE A DAY

REACTIONS (3)
  - CONVULSION [None]
  - FALL [None]
  - HEADACHE [None]
